FAERS Safety Report 17655525 (Version 1)
Quarter: 2020Q2

REPORT INFORMATION
  Report Type: Spontaneous
  Country: US (occurrence: US)
  Receive Date: 20200410
  Receipt Date: 20200410
  Transmission Date: 20200713
  Serious: No
  Sender: FDA-Public Use
  Company Number: US-PFIZER INC-2020140976

PATIENT
  Age: 62 Year
  Sex: Female
  Weight: 72.12 kg

DRUGS (1)
  1. PREMARIN [Suspect]
     Active Substance: ESTROGENS, CONJUGATED
     Indication: URINARY TRACT INFECTION
     Dosage: 1 G, 2-3 TIMES WEEKLY
     Route: 067

REACTIONS (3)
  - Product use in unapproved indication [Unknown]
  - Frustration tolerance decreased [Unknown]
  - Off label use [Unknown]
